FAERS Safety Report 23431520 (Version 1)
Quarter: 2024Q1

REPORT INFORMATION
  Report Type: Spontaneous
  Country: US (occurrence: US)
  Receive Date: 20240123
  Receipt Date: 20240123
  Transmission Date: 20240409
  Serious: No
  Sender: FDA-Public Use
  Company Number: US-SA-SAC20240119000814

PATIENT
  Sex: Female
  Weight: 31.38 kg

DRUGS (2)
  1. DUPIXENT [Suspect]
     Active Substance: DUPILUMAB
     Indication: Dermatitis atopic
     Dosage: DOSE AND ROUTE PRESCRIBED - 200 MG (1.14 ML) UNDER THE SKIN FREQUENCY- EVERY 2 WEEKS
     Route: 058
  2. DUPIXENT [Suspect]
     Active Substance: DUPILUMAB
     Indication: Dermatitis

REACTIONS (1)
  - Product use in unapproved indication [Unknown]
